FAERS Safety Report 11128965 (Version 2)
Quarter: 2015Q3

REPORT INFORMATION
  Report Type: Spontaneous
  Country: US (occurrence: US)
  Receive Date: 20150521
  Receipt Date: 20150707
  Transmission Date: 20151125
  Serious: Yes (Hospitalization)
  Sender: FDA-Public Use
  Company Number: US-PFIZER INC-2015115407

PATIENT
  Age: 74 Year
  Sex: Female

DRUGS (1)
  1. PREPARATION H COOLING GEL [Suspect]
     Active Substance: PHENYLEPHRINE HYDROCHLORIDE\WITCH HAZEL
     Indication: HAEMORRHOIDS
     Dosage: UNK

REACTIONS (2)
  - Anorectal discomfort [Recovered/Resolved]
  - Incorrect route of drug administration [Recovered/Resolved]
